FAERS Safety Report 8021407-X (Version None)
Quarter: 2012Q1

REPORT INFORMATION
  Report Type: 
  Country: None (occurrence: None)
  Receive Date: 20120104
  Receipt Date: 20111221
  Transmission Date: 20120608
  Serious: Yes (Hospitalization, Other)
  Sender: FDA-Public Use
  Company Number: DE-SANOFI-AVENTIS-2011SA084692

PATIENT
  Age: 71 Year
  Sex: Male
  Weight: 82.1 kg

DRUGS (12)
  1. OXALIPLATIN [Suspect]
     Indication: RECTAL CANCER
     Dosage: ON DAY 1, 8, 15, 21 AND 29
     Route: 042
     Dates: start: 20101025
  2. CAPECITABINE [Suspect]
     Indication: RECTAL CANCER
     Dosage: ON DAY 1 TO 33 WITHOUT WEEKENDS
     Route: 048
     Dates: start: 20101025
  3. BERLINSULIN H [Concomitant]
     Route: 058
  4. MEMANTINE HYDROCHLORIDE [Concomitant]
     Indication: DEMENTIA
     Route: 048
  5. DIGITOXIN TAB [Concomitant]
     Indication: HYPERTENSION
     Route: 048
  6. TRIMIPRAMINE MALEATE [Concomitant]
     Indication: DEPRESSION
     Dosage: SCHEDULING: 1 X 1/2, 1X 1/4
     Route: 048
  7. SIMVASTATIN [Concomitant]
     Dosage: DOSING SCHEDULE: 1 X 1/2
     Route: 048
  8. CAPECITABINE [Suspect]
     Dosage: ON DAY 1 TO 15 OF EACH CYCLE
     Route: 048
     Dates: end: 20110621
  9. OXALIPLATIN [Suspect]
     Dosage: ON DAY 1 OF EACH CYCLE
     Route: 042
     Dates: end: 20110607
  10. KARVEA [Concomitant]
     Indication: HYPERTENSION
     Route: 048
  11. THERAPEUTIC RADIOPHARMACEUTICALS [Suspect]
     Indication: RECTAL CANCER
     Dosage: 1.8 GY: DAY 1 TO 33; CUMULATVE DOSE: 50.4 GYRATION
     Route: 065
     Dates: start: 20101025, end: 20101201
  12. LIPROLOG [Concomitant]
     Dosage: UNIT: E/ML (100 UNIT NOT REPORTED)
     Route: 058

REACTIONS (2)
  - POST PROCEDURAL HAEMORRHAGE [None]
  - GASTROENTERITIS NOROVIRUS [None]
